FAERS Safety Report 7200602-3 (Version None)
Quarter: 2010Q4

REPORT INFORMATION
  Report Type: 
  Country: None (occurrence: None)
  Receive Date: 20101228
  Receipt Date: 20101220
  Transmission Date: 20110411
  Serious: Yes (Other)
  Sender: FDA-Public Use
  Company Number: BR-ABBOTT-10P-020-0692844-00

PATIENT
  Sex: Female
  Weight: 92 kg

DRUGS (3)
  1. HUMIRA [Suspect]
     Indication: RHEUMATOID ARTHRITIS
     Route: 058
     Dates: start: 20081101
  2. HUMIRA [Suspect]
     Route: 058
  3. ARADOIS H [Concomitant]
     Indication: HYPERTENSION
     Route: 048
     Dates: start: 20070101

REACTIONS (5)
  - ARTHRALGIA [None]
  - DIABETES MELLITUS INADEQUATE CONTROL [None]
  - INJECTION SITE PAIN [None]
  - LABILE BLOOD PRESSURE [None]
  - WEIGHT DECREASED [None]
